FAERS Safety Report 7417022-9 (Version None)
Quarter: 2011Q2

REPORT INFORMATION
  Report Type: 
  Country: None (occurrence: None)
  Receive Date: 20110412
  Receipt Date: 20110412
  Transmission Date: 20111010
  Serious: No
  Sender: FDA-Public Use
  Company Number: None

PATIENT
  Sex: Female
  Weight: 68.0396 kg

DRUGS (2)
  1. ALLOPURINOL [Suspect]
     Indication: GOUT
     Dosage: 300MG DAILY  ; 100MG TWICE DAILY
  2. ALLOPURINOL [Suspect]
     Indication: GOUT
     Dosage: 300MG DAILY  ; 100MG TWICE DAILY

REACTIONS (4)
  - RASH PRURITIC [None]
  - EYE DISORDER [None]
  - RENAL DISORDER [None]
  - SKIN ULCER [None]
